FAERS Safety Report 22198479 (Version 3)
Quarter: 2023Q2

REPORT INFORMATION
  Report Type: Spontaneous
  Country: GR (occurrence: GR)
  Receive Date: 20230411
  Receipt Date: 20230622
  Transmission Date: 20230722
  Serious: Yes (Other)
  Sender: FDA-Public Use
  Company Number: GR-Covis Pharma Europe B.V.-2023COV00856

PATIENT
  Age: 63 Year
  Sex: Female

DRUGS (4)
  1. ALVESCO [Suspect]
     Active Substance: CICLESONIDE
     Indication: Cough
     Dosage: 2 INHALATION 2 TIMES A DAY
     Route: 055
     Dates: start: 20230406
  2. ALVESCO [Suspect]
     Active Substance: CICLESONIDE
     Indication: Post-acute COVID-19 syndrome
  3. BILARGEN [Concomitant]
  4. FLUTINASAL [Concomitant]
     Indication: Product used for unknown indication

REACTIONS (6)
  - Suffocation feeling [Recovered/Resolved]
  - Pain [Recovered/Resolved]
  - Asthenia [Recovered/Resolved]
  - Cough [Recovered/Resolved]
  - Cyanosis [Recovered/Resolved]
  - Off label use [Unknown]

NARRATIVE: CASE EVENT DATE: 20230406
